FAERS Safety Report 5382559-3 (Version None)
Quarter: 2007Q3

REPORT INFORMATION
  Report Type: 
  Country: None (occurrence: None)
  Receive Date: 20070710
  Receipt Date: 20070702
  Transmission Date: 20080115
  Serious: Yes (Other)
  Sender: FDA-Public Use
  Company Number: PHBS2007BR11292

PATIENT
  Age: 66 Year
  Sex: Female

DRUGS (6)
  1. HIGROTON [Suspect]
     Indication: HYPERTENSION
     Dosage: 1 TABLET/DAY
     Route: 048
  2. DIOVAN HCT [Suspect]
     Indication: HYPERTENSION
     Dosage: VALS 160 / HCT 12.5 MG/DAY
     Route: 048
  3. DIOVAN HCT [Suspect]
     Dosage: VALS 160 / HCT 25 MG/DAY
     Route: 048
  4. AMLODIPINE [Concomitant]
     Dosage: 1 TABLET/DAY
     Route: 048
  5. ASPIRIN [Concomitant]
     Indication: THROMBOSIS
     Dosage: 1 TABLET/DAY
     Route: 048
  6. SIMVASTATIN [Concomitant]
     Indication: BLOOD CHOLESTEROL
     Dosage: 1 TABLET/DAY
     Route: 048

REACTIONS (1)
  - HYPERTENSION [None]
